FAERS Safety Report 17250954 (Version 2)
Quarter: 2020Q1

REPORT INFORMATION
  Report Type: Report from Study
  Country: BE (occurrence: BE)
  Receive Date: 20200109
  Receipt Date: 20200212
  Transmission Date: 20200409
  Serious: Yes (Death, Other)
  Sender: FDA-Public Use
  Company Number: BE-BRISTOL-MYERS SQUIBB COMPANY-BMS-2020-001453

PATIENT
  Age: 56 Year
  Sex: Male

DRUGS (2)
  1. NIVOLUMAB [Suspect]
     Active Substance: NIVOLUMAB
     Indication: RENAL CANCER METASTATIC
     Dosage: 3 MILLIGRAM/KILOGRAM, Q3WK
     Route: 042
     Dates: start: 20191128, end: 20191219
  2. IPILIMUMAB [Suspect]
     Active Substance: IPILIMUMAB
     Indication: RENAL CANCER METASTATIC
     Dosage: 1 MILLIGRAM/KILOGRAM, Q3WK
     Route: 042
     Dates: start: 20191128, end: 20191219

REACTIONS (1)
  - Malignant neoplasm progression [Fatal]

NARRATIVE: CASE EVENT DATE: 20200103
